FAERS Safety Report 4819073-7 (Version None)
Quarter: 2005Q4

REPORT INFORMATION
  Report Type: 
  Country: None (occurrence: None)
  Receive Date: 20051103
  Receipt Date: 20051025
  Transmission Date: 20060501
  Serious: Yes (Other)
  Sender: FDA-Public Use
  Company Number: US-JNJFOC-20051005294

PATIENT
  Sex: Female

DRUGS (6)
  1. REMICADE [Suspect]
     Indication: CROHN'S DISEASE
     Route: 042
  2. BENADRYL [Concomitant]
     Indication: PREMEDICATION
  3. 6MP [Concomitant]
     Indication: CROHN'S DISEASE
  4. NEURONTIN [Concomitant]
  5. SOMA [Concomitant]
  6. ULTRAM [Concomitant]

REACTIONS (2)
  - HYPOAESTHESIA [None]
  - VERTIGO POSITIONAL [None]
